FAERS Safety Report 6719045-1 (Version None)
Quarter: 2010Q2

REPORT INFORMATION
  Report Type: 
  Country: None (occurrence: None)
  Receive Date: 20100511
  Receipt Date: 20100430
  Transmission Date: 20101027
  Serious: Yes (Life-Threatening, Hospitalization, Disabling)
  Sender: FDA-Public Use
  Company Number: US-JNJFOC-20100501202

PATIENT
  Age: 55 Year
  Sex: Male

DRUGS (1)
  1. REOPRO [Suspect]
     Indication: MYOCARDIAL INFARCTION
     Route: 040

REACTIONS (1)
  - HAEMORRHAGIC STROKE [None]
